FAERS Safety Report 18743990 (Version 3)
Quarter: 2021Q1

REPORT INFORMATION
  Report Type: Spontaneous
  Country: JP (occurrence: JP)
  Receive Date: 20210114
  Receipt Date: 20210303
  Transmission Date: 20210419
  Serious: Yes (Hospitalization, Other)
  Sender: FDA-Public Use
  Company Number: JP-LUNDBECK-DKLU3026706

PATIENT
  Age: 7 Month
  Sex: Female
  Weight: 9.1 kg

DRUGS (8)
  1. SABRIL [Suspect]
     Active Substance: VIGABATRIN
     Dosage: ACTUAL DOSE: 1000 MG/DAY
     Route: 048
     Dates: start: 20201106, end: 20201119
  2. SABRIL [Suspect]
     Active Substance: VIGABATRIN
     Dosage: ACTUAL DOSE: 1125 MG/DAY
     Route: 048
     Dates: start: 20210106, end: 20210108
  3. SABRIL [Suspect]
     Active Substance: VIGABATRIN
     Dosage: ACTUAL DOSE: 780 MG/DAY
     Route: 048
     Dates: start: 20201103, end: 20201105
  4. LEVETIRACETAM. [Suspect]
     Active Substance: LEVETIRACETAM
     Indication: INFANTILE SPASMS
     Route: 048
     Dates: start: 20201205, end: 20210108
  5. SABRIL [Suspect]
     Active Substance: VIGABATRIN
     Indication: INFANTILE SPASMS
     Dosage: ACTUAL DOSE: 380 MG/DAY
     Route: 048
     Dates: start: 20201027, end: 20201029
  6. SABRIL [Suspect]
     Active Substance: VIGABATRIN
     Dosage: ACTUAL DOSE: 800 MG/DAY
     Route: 048
     Dates: start: 20210109
  7. SABRIL [Suspect]
     Active Substance: VIGABATRIN
     Dosage: ACTUAL DOSE: 1250 MG/DAY
     Route: 048
     Dates: start: 20201120, end: 20210105
  8. SABRIL [Suspect]
     Active Substance: VIGABATRIN
     Dosage: ACTUAL DOSE: 580 MG/DAY
     Route: 048
     Dates: start: 20201031, end: 20201102

REACTIONS (3)
  - Magnetic resonance imaging brain abnormal [Unknown]
  - Anaemia [Unknown]
  - Hypertension [Recovering/Resolving]

NARRATIVE: CASE EVENT DATE: 20201222
